FAERS Safety Report 12980208 (Version 2)
Quarter: 2019Q2

REPORT INFORMATION
  Report Type: Spontaneous
  Country: US (occurrence: US)
  Receive Date: 20161128
  Receipt Date: 20190620
  Transmission Date: 20190711
  Serious: Yes (Other)
  Sender: FDA-Public Use
  Company Number: US-INDIVIOR LIMITED-INDV-096781-2016

PATIENT

DRUGS (2)
  1. BUPRENORPHINE IMPLANT [Suspect]
     Active Substance: BUPRENORPHINE
     Indication: DRUG DEPENDENCE
     Dosage: 4 (80 MG EACH) SIMULTANEOUSLY PLACED 26?2.5-MM BUPRENORPHINE IMPLANTS
     Route: 059
  2. BUPRENORPHINE. [Suspect]
     Active Substance: BUPRENORPHINE
     Dosage: 8MG, DAILY OR LESS THAN 8MG DAILY
     Route: 060

REACTIONS (1)
  - Seizure [Unknown]
